FAERS Safety Report 10979001 (Version 1)
Quarter: 2015Q2

REPORT INFORMATION
  Report Type: Spontaneous
  Country: US (occurrence: US)
  Receive Date: 20150402
  Receipt Date: 20150402
  Transmission Date: 20150821
  Serious: No
  Sender: FDA-Public Use
  Company Number: US-PFIZER INC-2015110043

PATIENT
  Age: 71 Year
  Sex: Female
  Weight: 77 kg

DRUGS (11)
  1. XANAX [Concomitant]
     Active Substance: ALPRAZOLAM
     Indication: NERVOUSNESS
     Dosage: HALF OF 0.25MG TABLET AS NEEDED
  2. XANAX [Concomitant]
     Active Substance: ALPRAZOLAM
     Indication: SLEEP DISORDER
  3. BENTYL [Concomitant]
     Active Substance: DICYCLOMINE HYDROCHLORIDE
     Indication: IRRITABLE BOWEL SYNDROME
     Dosage: UNK, AS NEEDED
  4. ONE A DAY WOMEN^S PETITE VITAMINS [Concomitant]
     Dosage: UNK, 2X/DAY
  5. CELECOXIB. [Suspect]
     Active Substance: CELECOXIB
     Dosage: 200 MG, 1X/DAY
     Dates: start: 201412, end: 201501
  6. METROGEL [Concomitant]
     Active Substance: METRONIDAZOLE
     Indication: ROSACEA
     Dosage: UNK UNK, 2X/DAY
  7. CALTRATE WITH D3 [Concomitant]
     Dosage: 600MG/800IU
  8. GABAPENTIN. [Concomitant]
     Active Substance: GABAPENTIN
     Indication: NEURALGIA
  9. DESOWEN [Concomitant]
     Active Substance: DESONIDE
     Dosage: UNK, AS NEEDED
  10. RESTASIS [Concomitant]
     Active Substance: CYCLOSPORINE
     Indication: DRY EYE
     Dosage: UNK, 2X/DAY
  11. GABAPENTIN. [Concomitant]
     Active Substance: GABAPENTIN
     Indication: NEUROPATHY PERIPHERAL
     Dosage: 900 MG, 3X/DAY
     Dates: start: 2009

REACTIONS (2)
  - Neck pain [Recovered/Resolved]
  - Pain in extremity [Recovered/Resolved]

NARRATIVE: CASE EVENT DATE: 201412
